FAERS Safety Report 8891062 (Version 5)
Quarter: 2013Q3

REPORT INFORMATION
  Report Type: Spontaneous
  Country: US (occurrence: US)
  Receive Date: 20121107
  Receipt Date: 20130701
  Transmission Date: 20140515
  Serious: Yes (Hospitalization, Other)
  Sender: FDA-Public Use
  Company Number: US-009507513-1211USA002221

PATIENT
  Sex: Female
  Weight: 74.83 kg

DRUGS (12)
  1. FOSAMAX [Suspect]
     Indication: OSTEOPENIA
     Dosage: 70 MG, QW
     Route: 048
     Dates: start: 200312, end: 20110216
  2. FOSAMAX [Suspect]
     Indication: OSTEOPOROSIS
  3. FOSAMAX [Suspect]
     Indication: SENILE OSTEOPOROSIS
  4. FOSAMAX PLUS D [Suspect]
     Indication: OSTEOPENIA
  5. ALENDRONATE SODIUM [Suspect]
     Indication: OSTEOPENIA
     Dosage: 70 MG, QD
     Route: 048
     Dates: end: 20110216
  6. ALENDRONATE SODIUM [Suspect]
     Indication: OSTEOPOROSIS
  7. ALENDRONATE SODIUM [Suspect]
     Indication: SENILE OSTEOPOROSIS
  8. ATENOLOL [Concomitant]
  9. VITAMIN D (UNSPECIFIED) [Concomitant]
  10. VITAMIN B (UNSPECIFIED) [Concomitant]
  11. PREDNISONE [Concomitant]
     Indication: POLYMYALGIA RHEUMATICA
     Dosage: 5-20MG QD
  12. PREDNISONE [Concomitant]
     Indication: TEMPORAL ARTERITIS

REACTIONS (23)
  - Myocardial infarction [Recovered/Resolved]
  - Femur fracture [Recovered/Resolved]
  - Low turnover osteopathy [Unknown]
  - Anxiety [Recovered/Resolved]
  - Depression [Recovered/Resolved]
  - Spinal compression fracture [Unknown]
  - Urinary tract infection [Unknown]
  - Vitamin B12 deficiency [Unknown]
  - Weight decreased [Recovered/Resolved]
  - Jaw disorder [Unknown]
  - Spinal fracture [Unknown]
  - Increased tendency to bruise [Unknown]
  - Osteoarthritis [Unknown]
  - Tenderness [Unknown]
  - Ecchymosis [Unknown]
  - Pancytopenia [Unknown]
  - Intervertebral disc degeneration [Unknown]
  - Pain of skin [Unknown]
  - Headache [Unknown]
  - Headache [Not Recovered/Not Resolved]
  - Back pain [Unknown]
  - Pain in extremity [Unknown]
  - Arthralgia [Unknown]
